FAERS Safety Report 6483189-2 (Version None)
Quarter: 2009Q4

REPORT INFORMATION
  Report Type: 
  Country: None (occurrence: None)
  Receive Date: 20091209
  Receipt Date: 20091130
  Transmission Date: 20100525
  Serious: Yes (Hospitalization, Other)
  Sender: FDA-Public Use
  Company Number: US-AMGEN-QUU373981

PATIENT
  Sex: Female
  Weight: 63.6 kg

DRUGS (9)
  1. ENBREL [Suspect]
     Indication: RHEUMATOID ARTHRITIS
     Route: 058
     Dates: start: 20090519, end: 20091110
  2. TICE BCG [Suspect]
  3. VITAMIN D [Concomitant]
     Route: 042
  4. NEXIUM [Concomitant]
  5. CALCIUM [Concomitant]
  6. TYLENOL (CAPLET) [Concomitant]
  7. BONIVA [Concomitant]
  8. PREDNISONE [Concomitant]
  9. PLAQUENIL [Concomitant]

REACTIONS (7)
  - ABDOMINAL DISCOMFORT [None]
  - ARTHRALGIA [None]
  - BLADDER CANCER [None]
  - BLOOD CREATININE INCREASED [None]
  - CYSTITIS [None]
  - RHEUMATOID ARTHRITIS [None]
  - TENDONITIS [None]
